FAERS Safety Report 9906204 (Version 1)
Quarter: 2014Q1

REPORT INFORMATION
  Report Type: Spontaneous
  Country: US (occurrence: None)
  Receive Date: 20140212
  Receipt Date: 20140212
  Transmission Date: 20141002
  Serious: Yes (Congenital Anomaly)
  Sender: FDA-Public Use
  Company Number: None

PATIENT
  Age: 1 Day
  Sex: Male
  Weight: 3.13 kg

DRUGS (2)
  1. PRENATAL PLUS [Suspect]
     Indication: PRENATAL CARE
     Dosage: 2MONTHS OF GESTATION UNTIL 9 MONTHS, ONE PILL DAILY TAKEN BY MOTHER.
     Route: 048
  2. PRENATAL PLUS [Suspect]
     Indication: SUPPLEMENTATION THERAPY
     Dosage: 2MONTHS OF GESTATION UNTIL 9 MONTHS, ONE PILL DAILY TAKEN BY MOTHER.
     Route: 048

REACTIONS (2)
  - Maternal drugs affecting foetus [None]
  - Craniosynostosis [None]
